FAERS Safety Report 9705741 (Version 3)
Quarter: 2013Q4

REPORT INFORMATION
  Report Type: Spontaneous
  Country: RU (occurrence: RU)
  Receive Date: 20131122
  Receipt Date: 20131224
  Transmission Date: 20140711
  Serious: Yes (Other)
  Sender: FDA-Public Use
  Company Number: RU-AMGEN-RUSSP2013016427

PATIENT
  Age: 35 Year
  Sex: Female
  Weight: 78 kg

DRUGS (7)
  1. ARANESP [Suspect]
     Indication: ANAEMIA
     Dosage: 60 MUG, QWK
     Route: 042
     Dates: start: 20130130
  2. MIMPARA [Suspect]
     Indication: HYPERPARATHYROIDISM SECONDARY
     Dosage: 60 MG, 3 TIMES/WK
     Route: 048
     Dates: start: 20120604
  3. COSMOFER [Concomitant]
     Indication: ANAEMIA
     Dosage: 100 MG, 3 TIMES/WK
     Route: 042
     Dates: start: 20130313
  4. CYANOCOBALAMIN [Concomitant]
     Indication: ANAEMIA
     Dosage: 500 MUG, 3 TIMES/WK
     Route: 042
     Dates: start: 20130326
  5. FOLIC ACID [Concomitant]
  6. DEXAFENICOL [Concomitant]
     Dosage: UNK UNK, Q2WK
     Route: 030
  7. ALPHACALCIDOL [Concomitant]
     Indication: HYPERTENSION
     Dosage: 0.25 MUG, QD
     Dates: start: 201304

REACTIONS (4)
  - Premature delivery [Recovered/Resolved]
  - Parathyroid tumour benign [Unknown]
  - Anaemia [Unknown]
  - Blood parathyroid hormone abnormal [Unknown]
